FAERS Safety Report 18355995 (Version 2)
Quarter: 2020Q4

REPORT INFORMATION
  Report Type: Spontaneous
  Country: US (occurrence: US)
  Receive Date: 20201007
  Receipt Date: 20201014
  Transmission Date: 20210114
  Serious: Yes (Other)
  Sender: FDA-Public Use
  Company Number: US-ABBVIE-20K-163-3593477-00

PATIENT

DRUGS (1)
  1. DEPAKOTE [Suspect]
     Active Substance: DIVALPROEX SODIUM
     Indication: PRODUCT USED FOR UNKNOWN INDICATION
     Route: 048

REACTIONS (15)
  - Dysphagia [Unknown]
  - Hypertension [Unknown]
  - Dehydration [Unknown]
  - Anaemia [Unknown]
  - Dizziness [Unknown]
  - Gastritis [Unknown]
  - Cardiac disorder [Unknown]
  - Type 2 diabetes mellitus [Unknown]
  - Blood cholesterol increased [Unknown]
  - Crohn^s disease [Unknown]
  - Haemoptysis [Unknown]
  - Foreign body in throat [Unknown]
  - Dry mouth [Unknown]
  - Pharyngeal polyp [Unknown]
  - Dysuria [Unknown]
